FAERS Safety Report 24141401 (Version 2)
Quarter: 2024Q3

REPORT INFORMATION
  Report Type: Spontaneous
  Country: GR (occurrence: GR)
  Receive Date: 20240726
  Receipt Date: 20240920
  Transmission Date: 20241017
  Serious: Yes (Hospitalization, Other)
  Sender: BOEHRINGER INGELHEIM
  Company Number: GR-BoehringerIngelheim-2024-BI-041709

PATIENT
  Age: 61 Year
  Sex: Female

DRUGS (2)
  1. EMPAGLIFLOZIN [Suspect]
     Active Substance: EMPAGLIFLOZIN
     Indication: Type 2 diabetes mellitus
  2. METFORMIN [Suspect]
     Active Substance: METFORMIN HYDROCHLORIDE
     Indication: Type 2 diabetes mellitus

REACTIONS (5)
  - Diabetic ketoacidosis [Recovered/Resolved]
  - Adenocarcinoma pancreas [Not Recovered/Not Resolved]
  - Jaundice [Unknown]
  - Urinary tract infection [Unknown]
  - Weight decreased [Unknown]
